FAERS Safety Report 14601275 (Version 3)
Quarter: 2018Q2

REPORT INFORMATION
  Report Type: Spontaneous
  Country: US (occurrence: US)
  Receive Date: 20180305
  Receipt Date: 20180418
  Transmission Date: 20180711
  Serious: Yes (Other)
  Sender: FDA-Public Use
  Company Number: US-AMGEN-USASP2018027599

PATIENT
  Age: 41 Year
  Sex: Female
  Weight: 73.47 kg

DRUGS (3)
  1. MTX [Suspect]
     Active Substance: METHOTREXATE SODIUM
     Indication: RHEUMATOID ARTHRITIS
     Dosage: UNK
     Route: 048
     Dates: start: 200302, end: 200412
  2. ENBREL [Suspect]
     Active Substance: ETANERCEPT
     Indication: RHEUMATOID ARTHRITIS
     Dosage: 50 MG, QWK
     Route: 065
     Dates: start: 200412, end: 201610
  3. XELJANZ [Suspect]
     Active Substance: TOFACITINIB CITRATE
     Indication: PRODUCT USED FOR UNKNOWN INDICATION
     Route: 065

REACTIONS (5)
  - Dupuytren^s contracture [Unknown]
  - Lyme disease [Recovered/Resolved]
  - Drug effect decreased [Unknown]
  - Rheumatoid arthritis [Not Recovered/Not Resolved]
  - Low density lipoprotein increased [Unknown]

NARRATIVE: CASE EVENT DATE: 200412
